FAERS Safety Report 5165702-0 (Version None)
Quarter: 2006Q4

REPORT INFORMATION
  Report Type: 
  Country: None (occurrence: None)
  Receive Date: 20061128
  Receipt Date: 20061115
  Transmission Date: 20070319
  Serious: Yes (Other)
  Sender: FDA-Public Use
  Company Number: 2006144405

PATIENT
  Age: 72 Year
  Sex: Male

DRUGS (6)
  1. LYRICA [Suspect]
     Indication: MUSCLE SPASMS
     Dosage: 150 MG (75 MG, 2 IN 1 D) ORAL
     Route: 048
     Dates: start: 20061001
  2. ALL OTHER THERAPEUTIC PRODUCTS [Concomitant]
  3. COMTESS (ENTACAPONE) [Concomitant]
  4. CIPRALEX (ESCITALOPRAM) [Concomitant]
  5. MADOPAR (BENSERAZIDE HYDROCHLORIDE) [Concomitant]
  6. MIRAPEXIN (PRAMIPEXOLE DIHYDROCHLORIDE) [Concomitant]

REACTIONS (3)
  - DIZZINESS [None]
  - GENERAL PHYSICAL HEALTH DETERIORATION [None]
  - MOBILITY DECREASED [None]
